FAERS Safety Report 10111634 (Version 6)
Quarter: 2015Q1

REPORT INFORMATION
  Report Type: Report from Study
  Country: DE (occurrence: DE)
  Receive Date: 20140425
  Receipt Date: 20150113
  Transmission Date: 20150720
  Serious: Yes (Hospitalization)
  Sender: FDA-Public Use
  Company Number: DE-ASTRAZENECA-2014SE04891

PATIENT
  Age: 66 Year
  Sex: Female
  Weight: 84.3 kg

DRUGS (11)
  1. AZD6140 [Suspect]
     Active Substance: TICAGRELOR
     Indication: PERIPHERAL ARTERIAL OCCLUSIVE DISEASE
     Route: 048
     Dates: start: 20130902, end: 20131210
  2. EUBIOL [Concomitant]
     Indication: DIARRHOEA
     Dosage: 375 MG, 1-0-0-0
     Dates: start: 201401, end: 201401
  3. PANTOZOL [Concomitant]
     Active Substance: PANTOPRAZOLE SODIUM
     Indication: GASTROOESOPHAGEAL REFLUX DISEASE
     Dosage: 40 MG 0-0-1
     Dates: start: 2014
  4. MELPERON [Concomitant]
     Active Substance: MELPERONE
     Indication: MENTAL DISORDER
     Dosage: 50 MG, 0-0-0-2
     Dates: start: 201401, end: 201401
  5. SORTIS [Concomitant]
     Active Substance: ATORVASTATIN
     Indication: LIPID METABOLISM DISORDER
     Dosage: 20 MG 0-0-1
     Dates: start: 2008
  6. ZOPICLON [Concomitant]
     Active Substance: ZOPICLONE
     Indication: SLEEP DISORDER
     Dosage: 7.5 MG 0-0-1
     Dates: start: 2013, end: 201401
  7. LYRICA [Concomitant]
     Active Substance: PREGABALIN
     Indication: NEURALGIA
     Dosage: 100 MG, 1-0-1
     Dates: start: 2013, end: 201401
  8. SCHWEDENTABLETTEN [Concomitant]
     Indication: FLUID REPLACEMENT
     Dosage: 0.25 MG 2-2-2
     Dates: start: 2013, end: 201401
  9. THYRONAIOD [Concomitant]
     Indication: HORMONE REPLACEMENT THERAPY
     Dosage: 75 MG 1-0-0
     Dates: start: 1999
  10. RAMIPRIL. [Concomitant]
     Active Substance: RAMIPRIL
     Indication: BLOOD PRESSURE ABNORMAL
     Dosage: 10 MG 1-1-0
     Dates: start: 2004, end: 201401
  11. VOLTAREN RESINAT [Concomitant]
     Active Substance: DICLOFENAC
     Indication: PAIN
     Dosage: 100 MG 1-0-1
     Dates: start: 2004, end: 201401

REACTIONS (1)
  - Diverticulitis intestinal haemorrhagic [Recovered/Resolved with Sequelae]

NARRATIVE: CASE EVENT DATE: 20140113
